FAERS Safety Report 7965411-6 (Version None)
Quarter: 2011Q4

REPORT INFORMATION
  Report Type: 
  Country: None (occurrence: None)
  Receive Date: 20111208
  Receipt Date: 20111130
  Transmission Date: 20120403
  Serious: Yes (Other)
  Sender: FDA-Public Use
  Company Number: US-BAYER-2011-026678

PATIENT
  Age: 20 Year
  Sex: Female
  Weight: 95.238 kg

DRUGS (11)
  1. YAZ [Suspect]
     Indication: PREMENSTRUAL SYNDROME
  2. ALBUTEROL [Concomitant]
     Dosage: 2 PUFF(S), 4 TIMES DAILY
     Dates: start: 19980319
  3. ORTHO TRI-CYCLEN [Concomitant]
  4. ALBUTEROL [Concomitant]
     Indication: ASTHMA
     Dosage: UNK
     Dates: start: 19910101
  5. YAZ [Suspect]
     Indication: ACNE
     Dosage: UNK
     Route: 048
     Dates: start: 20070101, end: 20080101
  6. OMEPRAZOLE [Concomitant]
     Dosage: UNK UNK, QD
  7. ATENOLOL [Concomitant]
  8. PRILOSEC [Concomitant]
     Dosage: UNK UNK, QD
  9. PHENERGAN [Concomitant]
  10. YAZ [Suspect]
  11. ANTIPROPULSIVES [Concomitant]

REACTIONS (7)
  - GALLBLADDER DISORDER [None]
  - BILIARY DYSKINESIA [None]
  - WEIGHT INCREASED [None]
  - CHOLECYSTITIS CHRONIC [None]
  - EMOTIONAL DISTRESS [None]
  - INJURY [None]
  - PAIN [None]
